FAERS Safety Report 6845431-5 (Version None)
Quarter: 2010Q3

REPORT INFORMATION
  Report Type: 
  Country: None (occurrence: None)
  Receive Date: 20100715
  Receipt Date: 20070822
  Transmission Date: 20110219
  Serious: No
  Sender: FDA-Public Use
  Company Number: US-PFIZER INC-2007070645

PATIENT
  Sex: Male

DRUGS (5)
  1. CHANTIX [Suspect]
     Indication: SMOKING CESSATION THERAPY
     Route: 048
     Dates: start: 20070101
  2. LOVASTATIN [Concomitant]
     Indication: BLOOD PRESSURE ABNORMAL
  3. TARKA [Concomitant]
  4. ALPRAZOLAM [Concomitant]
  5. NAPROXEN [Concomitant]

REACTIONS (1)
  - NAUSEA [None]
